FAERS Safety Report 23813636 (Version 1)
Quarter: 2024Q2

REPORT INFORMATION
  Report Type: Spontaneous
  Country: FR (occurrence: FR)
  Receive Date: 20240503
  Receipt Date: 20240503
  Transmission Date: 20240716
  Serious: Yes (Hospitalization, Other)
  Sender: FDA-Public Use
  Company Number: FR-AFSSAPS-GR2024000485

PATIENT
  Age: 21 Year
  Sex: Female
  Weight: 53 kg

DRUGS (3)
  1. CYAMEMAZINE [Suspect]
     Active Substance: CYAMEMAZINE
     Indication: Intentional overdose
     Dosage: 15 DOSAGE FORM (25 MG X 15 CP PRISE UNIQUE)
     Route: 048
     Dates: start: 20240312, end: 20240312
  2. DIAZEPAM [Suspect]
     Active Substance: DIAZEPAM
     Indication: Intentional overdose
     Dosage: UNK (NR)
     Route: 048
     Dates: start: 20240312, end: 20240312
  3. QUETIAPINE [Suspect]
     Active Substance: QUETIAPINE
     Indication: Intentional overdose
     Dosage: 20 DOSAGE FORM (300 MG X 20 CP PRISE UNIQUE)
     Route: 048
     Dates: start: 20240312, end: 20240312

REACTIONS (4)
  - Urinary retention [Recovered/Resolved]
  - Poisoning deliberate [Recovered/Resolved]
  - Somnolence [Recovered/Resolved]
  - Agitation [Recovered/Resolved]

NARRATIVE: CASE EVENT DATE: 20240312
